FAERS Safety Report 6274158-6 (Version None)
Quarter: 2009Q3

REPORT INFORMATION
  Report Type: 
  Country: None (occurrence: None)
  Receive Date: 20090720
  Receipt Date: 20090710
  Transmission Date: 20100115
  Serious: Yes (Disabling)
  Sender: FDA-Public Use
  Company Number: DK-ASTRAZENECA-2009SE04673

PATIENT
  Sex: Female

DRUGS (2)
  1. LIDOCAINE [Suspect]
     Indication: EPICONDYLITIS
     Dates: start: 20071213, end: 20071213
  2. KENALOG [Suspect]
     Indication: EPICONDYLITIS
     Dates: start: 20071213, end: 20071213

REACTIONS (5)
  - INJECTION SITE DISCOLOURATION [None]
  - PARAESTHESIA [None]
  - PHOTOSENSITIVITY REACTION [None]
  - SKIN DISORDER [None]
  - TEMPERATURE INTOLERANCE [None]
